FAERS Safety Report 13006443 (Version 1)
Quarter: 2016Q4

REPORT INFORMATION
  Report Type: Spontaneous
  Country: US (occurrence: US)
  Receive Date: 20161206
  Receipt Date: 20161206
  Transmission Date: 20170207
  Serious: Yes (Other)
  Sender: FDA-Public Use
  Company Number: None

PATIENT
  Age: 67 Year
  Sex: Male
  Weight: 75.1 kg

DRUGS (1)
  1. JANUVIA [Suspect]
     Active Substance: SITAGLIPTIN PHOSPHATE
     Indication: DIABETES MELLITUS INADEQUATE CONTROL
     Route: 048
     Dates: start: 20150918, end: 20161201

REACTIONS (5)
  - Leukocytosis [None]
  - Abdominal pain upper [None]
  - Blood glucose abnormal [None]
  - Nausea [None]
  - Pancreatitis [None]

NARRATIVE: CASE EVENT DATE: 20161202
